FAERS Safety Report 25314405 (Version 1)
Quarter: 2025Q2

REPORT INFORMATION
  Report Type: Spontaneous
  Country: US (occurrence: US)
  Receive Date: 20250514
  Receipt Date: 20250514
  Transmission Date: 20250717
  Serious: Yes (Hospitalization)
  Sender: Kenvue
  Company Number: US-KENVUE-20250501286

PATIENT
  Age: 38 Year
  Sex: Female

DRUGS (1)
  1. TITANIUM DIOXIDE ZINC OXIDE [Suspect]
     Active Substance: TITANIUM DIOXIDE\ZINC OXIDE
     Indication: Prophylaxis against solar radiation
     Route: 061
     Dates: start: 20250412

REACTIONS (3)
  - Application site acne [Not Recovered/Not Resolved]
  - Application site vesicles [Not Recovered/Not Resolved]
  - Application site hypersensitivity [Not Recovered/Not Resolved]

NARRATIVE: CASE EVENT DATE: 20250412
